FAERS Safety Report 19091572 (Version 1)
Quarter: 2021Q2

REPORT INFORMATION
  Report Type: Spontaneous
  Country: US (occurrence: US)
  Receive Date: 20210405
  Receipt Date: 20210405
  Transmission Date: 20210717
  Serious: No
  Sender: FDA-Public Use
  Company Number: US-ASTRAZENECA-2021A098852

PATIENT
  Age: 63 Year
  Sex: Female

DRUGS (4)
  1. SEROQUEL [Suspect]
     Active Substance: QUETIAPINE FUMARATE
     Dosage: UNKNOWN
     Route: 048
  2. RIVASTIGMINE. [Suspect]
     Active Substance: RIVASTIGMINE
  3. MELATONIN [Concomitant]
     Active Substance: MELATONIN
  4. CARBIDOPA/ LENODOPA [Concomitant]

REACTIONS (5)
  - Delirium [Unknown]
  - Hallucination [Unknown]
  - Insomnia [Unknown]
  - Irritability [Not Recovered/Not Resolved]
  - Hypersomnia [Unknown]
